FAERS Safety Report 6033201-X (Version None)
Quarter: 2009Q1

REPORT INFORMATION
  Report Type: 
  Country: None (occurrence: None)
  Receive Date: 20090105
  Receipt Date: 20080213
  Transmission Date: 20090719
  Serious: Yes (Other)
  Sender: FDA-Public Use
  Company Number: US-000265

PATIENT
  Age: 22 Year
  Sex: Female
  Weight: 84 kg

DRUGS (2)
  1. MULTIHANCE [Suspect]
     Indication: NUCLEAR MAGNETIC RESONANCE IMAGING
     Dosage: 15ML QD INTRAVENOUS (NOT OTHERWISE SPECIFIED)
     Route: 042
     Dates: start: 20080124, end: 20080124
  2. MULTIHANCE [Suspect]
     Indication: PROLACTINOMA
     Dosage: 15ML QD INTRAVENOUS (NOT OTHERWISE SPECIFIED)
     Route: 042
     Dates: start: 20080124, end: 20080124

REACTIONS (1)
  - HYPERSENSITIVITY [None]
